FAERS Safety Report 4461301-4 (Version None)
Quarter: 2004Q3

REPORT INFORMATION
  Report Type: 
  Country: None (occurrence: None)
  Receive Date: 20040928
  Receipt Date: 20040915
  Transmission Date: 20050211
  Serious: Yes (Other)
  Sender: FDA-Public Use
  Company Number: 12692208

PATIENT
  Age: 26 Year
  Sex: Male

DRUGS (3)
  1. LAMIVUDINE [Suspect]
     Indication: HIV INFECTION
     Route: 048
     Dates: start: 20040322
  2. STAVUDINE [Suspect]
     Indication: HIV INFECTION
     Dates: start: 20040322
  3. NEVIRAPINE [Suspect]
     Indication: HIV INFECTION
     Dates: start: 20040322

REACTIONS (1)
  - GAMMA-GLUTAMYLTRANSFERASE INCREASED [None]
